FAERS Safety Report 25146659 (Version 1)
Quarter: 2025Q2

REPORT INFORMATION
  Report Type: Spontaneous
  Country: LT (occurrence: LT)
  Receive Date: 20250401
  Receipt Date: 20250401
  Transmission Date: 20250716
  Serious: Yes (Other)
  Sender: MYLAN
  Company Number: LT-BRISTOL-MYERS SQUIBB COMPANY-2025-039467

PATIENT
  Age: 72 Year
  Sex: Male

DRUGS (4)
  1. APIXABAN [Suspect]
     Active Substance: APIXABAN
     Indication: Atrial fibrillation
  2. APIXABAN [Suspect]
     Active Substance: APIXABAN
     Route: 065
  3. APIXABAN [Suspect]
     Active Substance: APIXABAN
     Route: 065
  4. APIXABAN [Suspect]
     Active Substance: APIXABAN

REACTIONS (2)
  - Atrial fibrillation [Unknown]
  - Product dose omission issue [Unknown]
